FAERS Safety Report 8152520-4 (Version None)
Quarter: 2012Q1

REPORT INFORMATION
  Report Type: 
  Country: None (occurrence: None)
  Receive Date: 20120215
  Receipt Date: 20120206
  Transmission Date: 20120608
  Serious: Yes (Hospitalization, Disabling, Other)
  Sender: FDA-Public Use
  Company Number: 2008AL004178

PATIENT
  Age: 84 Year
  Sex: Female
  Weight: 54.4316 kg

DRUGS (31)
  1. ALPRAZOLAM [Concomitant]
  2. PROPDXYPHENE [Concomitant]
  3. LIDODERM [Concomitant]
  4. ZITHROMAX [Concomitant]
  5. PRAVASTATIN [Concomitant]
  6. DIGOXIN [Suspect]
     Indication: HEART RATE IRREGULAR
     Dosage: 0.25 MG; QD; PO
     Route: 048
     Dates: start: 19941029, end: 20100330
  7. LYRICA [Concomitant]
  8. CENTRUM [Concomitant]
  9. VITAMIN TAB [Concomitant]
  10. AMOXICILLIN [Concomitant]
  11. CEPHALEXIN [Concomitant]
  12. ACETAMINOPHEN [Concomitant]
  13. PRAVACHOL [Concomitant]
  14. SYNTHROID [Concomitant]
  15. ASPIRIN [Concomitant]
  16. ASPIRIN [Concomitant]
  17. XANAX [Concomitant]
  18. FERROUS SULFATE TAB [Concomitant]
  19. NYSTATIN [Concomitant]
  20. PLAVIX [Concomitant]
  21. ZESTRIL [Concomitant]
  22. FOLTRIN [Concomitant]
  23. VALTREX [Concomitant]
  24. FLUCONAZOLE [Concomitant]
  25. CIPROFLOXACIN [Concomitant]
  26. HYDRAZINE [Concomitant]
  27. CEFDINIR [Concomitant]
  28. QUALAQUIN [Concomitant]
  29. HYDRALAZINE HCL [Concomitant]
  30. LODINE [Concomitant]
  31. DYNABAC [Concomitant]

REACTIONS (75)
  - WEIGHT DECREASED [None]
  - PAIN [None]
  - NERVOUS SYSTEM DISORDER [None]
  - DYSPNOEA [None]
  - UPPER RESPIRATORY TRACT INFECTION [None]
  - BACK INJURY [None]
  - MITRAL VALVE CALCIFICATION [None]
  - FATIGUE [None]
  - OSTEOARTHRITIS [None]
  - ASTHENIA [None]
  - CAROTID ARTERY STENOSIS [None]
  - ABDOMINAL HERNIA [None]
  - FAECES DISCOLOURED [None]
  - HYPOTENSION [None]
  - FEELING ABNORMAL [None]
  - AORTIC VALVE INCOMPETENCE [None]
  - HYPOAESTHESIA [None]
  - FALL [None]
  - LUMBAR SPINAL STENOSIS [None]
  - HYPERTENSION [None]
  - SYNOVITIS [None]
  - ANXIETY [None]
  - CONTUSION [None]
  - EXPOSURE TO COMMUNICABLE DISEASE [None]
  - PAIN IN EXTREMITY [None]
  - MUCOUS STOOLS [None]
  - SKIN DISORDER [None]
  - EXERCISE ELECTROCARDIOGRAM ABNORMAL [None]
  - SUPRAVENTRICULAR EXTRASYSTOLES [None]
  - NAUSEA [None]
  - VISION BLURRED [None]
  - ACTIVITIES OF DAILY LIVING IMPAIRED [None]
  - CORONARY ARTERY DISEASE [None]
  - GAIT DISTURBANCE [None]
  - INFLUENZA [None]
  - SINUSITIS [None]
  - BURNING SENSATION [None]
  - INGUINAL HERNIA [None]
  - HAEMORRHAGE [None]
  - GASTRIC DISORDER [None]
  - CHEST PAIN [None]
  - INTERVERTEBRAL DISC PROTRUSION [None]
  - NEUROPATHY PERIPHERAL [None]
  - PALPITATIONS [None]
  - CONDITION AGGRAVATED [None]
  - CAROTID ARTERY OCCLUSION [None]
  - ENDOCARDITIS [None]
  - DYSPEPSIA [None]
  - HERPES ZOSTER [None]
  - CAROTID ARTERIOSCLEROSIS [None]
  - MITRAL VALVE INCOMPETENCE [None]
  - LEFT ATRIAL DILATATION [None]
  - PERICARDIAL EFFUSION [None]
  - NERVE ROOT LESION [None]
  - CHOLELITHIASIS [None]
  - DIZZINESS [None]
  - TRANSIENT ISCHAEMIC ATTACK [None]
  - VERTIGO [None]
  - SPINAL OSTEOARTHRITIS [None]
  - CELLULITIS [None]
  - ECCHYMOSIS [None]
  - THROAT IRRITATION [None]
  - MUSCULOSKELETAL PAIN [None]
  - TRICUSPID VALVE INCOMPETENCE [None]
  - AORTIC VALVE CALCIFICATION [None]
  - VOMITING [None]
  - COLD SWEAT [None]
  - ACCIDENTAL OVERDOSE [None]
  - HYPERCHOLESTEROLAEMIA [None]
  - CERVICAL MYELOPATHY [None]
  - MUSCLE SPASMS [None]
  - ISCHAEMIA [None]
  - UMBILICAL HERNIA [None]
  - LACERATION [None]
  - MULTIPLE INJURIES [None]
